FAERS Safety Report 6812194-9 (Version None)
Quarter: 2010Q3

REPORT INFORMATION
  Report Type: 
  Country: None (occurrence: None)
  Receive Date: 20100701
  Receipt Date: 20100628
  Transmission Date: 20110219
  Serious: Yes (Other)
  Sender: FDA-Public Use
  Company Number: FR-SANOFI-AVENTIS-2010SA037120

PATIENT
  Age: 69 Year
  Sex: Female

DRUGS (4)
  1. RIFADIN [Suspect]
     Route: 048
     Dates: start: 20100216, end: 20100401
  2. OFLOCET [Concomitant]
     Route: 048
     Dates: start: 20100216, end: 20100323
  3. OFLOCET [Concomitant]
     Route: 065
     Dates: start: 20100413
  4. CIFLOX [Concomitant]
     Route: 065
     Dates: start: 20100323

REACTIONS (1)
  - CHOLESTASIS [None]
